FAERS Safety Report 9285423 (Version 4)
Quarter: 2014Q3

REPORT INFORMATION
  Report Type: Spontaneous
  Country: US (occurrence: US)
  Receive Date: 20130513
  Receipt Date: 20140806
  Transmission Date: 20150326
  Serious: No
  Sender: FDA-Public Use
  Company Number: US-PFIZER INC-2013146618

PATIENT
  Age: 51 Year
  Sex: Male

DRUGS (2)
  1. SUTENT [Suspect]
     Active Substance: SUNITINIB MALATE
     Indication: RENAL CANCER
     Dosage: 37.5 MG DAILY (X 2 WKS ON + 1 WK OFF), CYCLIC
     Route: 048
     Dates: start: 200809
  2. SUTENT [Suspect]
     Active Substance: SUNITINIB MALATE
     Dosage: 12.5 MG, 3 DAILY 4 WKS ON, 2 WKS OFF
     Route: 048
     Dates: start: 20081002

REACTIONS (9)
  - Glossodynia [Unknown]
  - Nausea [Recovered/Resolved]
  - Palmar-plantar erythrodysaesthesia syndrome [Recovering/Resolving]
  - Vomiting [Recovered/Resolved]
  - Asthenia [Recovering/Resolving]
  - Skin exfoliation [Unknown]
  - Abdominal discomfort [Unknown]
  - Diarrhoea [Recovered/Resolved]
  - Fatigue [Recovering/Resolving]

NARRATIVE: CASE EVENT DATE: 20130508
